FAERS Safety Report 18665789 (Version 1)
Quarter: 2020Q4

REPORT INFORMATION
  Report Type: Spontaneous
  Country: PL (occurrence: PL)
  Receive Date: 20201226
  Receipt Date: 20201226
  Transmission Date: 20210114
  Serious: Yes (Death)
  Sender: FDA-Public Use
  Company Number: PL-TEVA-2020-PL-1861620

PATIENT
  Sex: Female

DRUGS (2)
  1. DEPAKINE [Interacting]
     Active Substance: VALPROATE SODIUM
     Dosage: 600 MILLIGRAM DAILY;
  2. LAMOTRIGINE. [Suspect]
     Active Substance: LAMOTRIGINE
     Dosage: 200 MILLIGRAM DAILY;

REACTIONS (2)
  - Drug interaction [Fatal]
  - Toxicity to various agents [Fatal]
